FAERS Safety Report 7498729-4 (Version None)
Quarter: 2011Q2

REPORT INFORMATION
  Report Type: 
  Country: None (occurrence: None)
  Receive Date: 20110524
  Receipt Date: 20110510
  Transmission Date: 20111010
  Serious: Yes (Hospitalization)
  Sender: FDA-Public Use
  Company Number: US-MYLANLABS-2011S1009767

PATIENT
  Age: 62 Year
  Sex: Female

DRUGS (8)
  1. NORTRIPTYLINE HCL [Suspect]
     Dosage: 25MG DAILY
     Route: 065
  2. ESCITALOPRAM [Concomitant]
     Dosage: 10MG DAILY
     Route: 065
  3. ATORVASTATIN [Concomitant]
     Dosage: 20MG DAILY
     Route: 065
  4. TOPIRAMATE [Concomitant]
     Dosage: 25MG DAILY
     Route: 065
  5. ASPIRIN [Concomitant]
     Route: 065
  6. SUCCINYLCHOLINE CHLORIDE [Suspect]
     Route: 065
  7. ONDANSETRON [Suspect]
     Route: 065
  8. HEPARIN [Concomitant]
     Indication: THROMBOSIS PROPHYLAXIS
     Route: 058

REACTIONS (4)
  - LONG QT SYNDROME [None]
  - BRADYCARDIA [None]
  - CARDIAC ARREST [None]
  - VENTRICULAR TACHYCARDIA [None]
